FAERS Safety Report 6140575-8 (Version None)
Quarter: 2009Q2

REPORT INFORMATION
  Report Type: 
  Country: None (occurrence: None)
  Receive Date: 20090402
  Receipt Date: 20090330
  Transmission Date: 20091009
  Serious: Yes (Death)
  Sender: FDA-Public Use
  Company Number: SE-JNJFOC-20090307355

PATIENT
  Age: 87 Year
  Sex: Female

DRUGS (2)
  1. HALDOL DEPOT [Suspect]
     Indication: DRUG USE FOR UNKNOWN INDICATION
     Route: 058
  2. MORPHINE [Suspect]
     Indication: COLON CANCER
     Route: 065

REACTIONS (4)
  - ACCIDENTAL EXPOSURE [None]
  - ACCIDENTAL OVERDOSE [None]
  - MEDICATION ERROR [None]
  - PULMONARY EMBOLISM [None]
